FAERS Safety Report 13021026 (Version 1)
Quarter: 2016Q4

REPORT INFORMATION
  Report Type: Spontaneous
  Country: US (occurrence: US)
  Receive Date: 20161212
  Receipt Date: 20161212
  Transmission Date: 20170207
  Serious: No
  Sender: FDA-Public Use
  Company Number: None

PATIENT
  Age: 77 Year
  Sex: Female

DRUGS (1)
  1. RIBAVIRIN 200MG ZYDUS [Suspect]
     Active Substance: RIBAVIRIN
     Dosage: 400 MG IN AM AND 300MG IN PM
     Route: 048
     Dates: start: 20160727

REACTIONS (6)
  - Alopecia [None]
  - Paraesthesia [None]
  - Cough [None]
  - Insomnia [None]
  - Joint swelling [None]
  - Cushingoid [None]

NARRATIVE: CASE EVENT DATE: 20161029
